FAERS Safety Report 11697945 (Version 1)
Quarter: 2015Q4

REPORT INFORMATION
  Report Type: Spontaneous
  Country: US (occurrence: US)
  Receive Date: 20151104
  Receipt Date: 20151104
  Transmission Date: 20160304
  Serious: No
  Sender: FDA-Public Use
  Company Number: US-APOPHARMA USA, INC.-2012AP000705

PATIENT
  Age: 38 Year
  Sex: Female
  Weight: 50 kg

DRUGS (3)
  1. DESFERAL [Concomitant]
     Active Substance: DEFEROXAMINE MESYLATE
  2. FERRIPROX [Suspect]
     Active Substance: DEFERIPRONE
     Indication: THALASSAEMIA BETA
     Route: 048
     Dates: start: 20120210, end: 20120212
  3. FERRIPROX [Suspect]
     Active Substance: DEFERIPRONE
     Indication: IRON OVERLOAD

REACTIONS (1)
  - Feeling abnormal [Recovered/Resolved]

NARRATIVE: CASE EVENT DATE: 20120210
